FAERS Safety Report 8775319 (Version 2)
Quarter: 2012Q4

REPORT INFORMATION
  Report Type: Report from Study
  Country: US (occurrence: US)
  Receive Date: 20120909
  Receipt Date: 20120920
  Transmission Date: 20130627
  Serious: Yes (Hospitalization, Other)
  Sender: FDA-Public Use
  Company Number: US-ABBOTT-12P-163-0976940-00

PATIENT
  Age: 59 Year
  Sex: Male

DRUGS (1)
  1. HUMIRA [Suspect]
     Indication: CROHN^S DISEASE
     Dosage: Day 1
     Route: 058
     Dates: start: 20120807

REACTIONS (8)
  - Haemorrhage [Recovered/Resolved]
  - Crohn^s disease [Unknown]
  - Anaemia [Recovering/Resolving]
  - Haemoglobin abnormal [Recovering/Resolving]
  - Haemoglobin abnormal [Recovering/Resolving]
  - Haemoglobin abnormal [Recovering/Resolving]
  - White blood cell count abnormal [Not Recovered/Not Resolved]
  - White blood cell count abnormal [Unknown]
